FAERS Safety Report 21321673 (Version 1)
Quarter: 2022Q3

REPORT INFORMATION
  Report Type: Spontaneous
  Country: US (occurrence: None)
  Receive Date: 20220909
  Receipt Date: 20220909
  Transmission Date: 20221027
  Serious: No
  Sender: FDA-Public Use
  Company Number: None

PATIENT
  Age: 43 Year
  Sex: Male

DRUGS (1)
  1. TREMFYA [Suspect]
     Active Substance: GUSELKUMAB
     Indication: Psoriasis
     Dosage: 100 MG EVERY 8 WEEKS SC?
     Route: 058
     Dates: start: 20220105

REACTIONS (3)
  - Needle issue [None]
  - Wrong technique in device usage process [None]
  - Product dose omission issue [None]

NARRATIVE: CASE EVENT DATE: 20220902
